FAERS Safety Report 6344400-1 (Version None)
Quarter: 2009Q3

REPORT INFORMATION
  Report Type: 
  Country: None (occurrence: None)
  Receive Date: 20090908
  Receipt Date: 20090828
  Transmission Date: 20100115
  Serious: Yes (Hospitalization)
  Sender: FDA-Public Use
  Company Number: PHHY2009FR36696

PATIENT

DRUGS (11)
  1. ZOMETA [Suspect]
     Indication: COMPLEX REGIONAL PAIN SYNDROME
     Dosage: 35 MG, ONCE/SINGLE
     Dates: start: 20080715
  2. ESOMEPRAZOLE [Concomitant]
  3. AERIUS [Concomitant]
  4. KARDEGIC [Concomitant]
  5. ZESTRIL [Concomitant]
     Dosage: 5 MG, UNK
  6. VASTAREL [Concomitant]
     Dosage: UNK
  7. TAHOR [Concomitant]
     Dosage: 40 MG, UNK
  8. NOCTRAN [Concomitant]
     Dosage: 10 MG, UNK
  9. FORLAX [Concomitant]
  10. STRESAM [Concomitant]
  11. EFFEXOR [Concomitant]
     Dosage: 75 MG, UNK

REACTIONS (8)
  - ALOPECIA [None]
  - CALCINOSIS [None]
  - INFLUENZA LIKE ILLNESS [None]
  - MUSCULOSKELETAL STIFFNESS [None]
  - MYALGIA [None]
  - PAIN [None]
  - PYREXIA [None]
  - SUBCUTANEOUS NODULE [None]
